FAERS Safety Report 6402702-4 (Version None)
Quarter: 2009Q4

REPORT INFORMATION
  Report Type: 
  Country: None (occurrence: None)
  Receive Date: 20091009
  Receipt Date: 20090924
  Transmission Date: 20100525
  Serious: Yes (Hospitalization)
  Sender: FDA-Public Use
  Company Number: 8052947

PATIENT
  Sex: Female
  Weight: 2.7 kg

DRUGS (2)
  1. KEPPRA [Suspect]
     Indication: CONVULSION NEONATAL
     Dates: start: 20090915
  2. LUMINALE [Concomitant]

REACTIONS (3)
  - CLOSTRIDIAL INFECTION [None]
  - ENTERITIS [None]
  - HAEMATOCHEZIA [None]
